FAERS Safety Report 8231173-0 (Version None)
Quarter: 2012Q1

REPORT INFORMATION
  Report Type: 
  Country: None (occurrence: None)
  Receive Date: 20120323
  Receipt Date: 20120323
  Transmission Date: 20120608
  Serious: Yes (Other)
  Sender: FDA-Public Use
  Company Number: None

PATIENT
  Sex: Female
  Weight: 131 kg

DRUGS (1)
  1. DAPTOMYCIN [Suspect]
     Indication: ABSCESS
     Dosage: 820 MG
     Route: 041
     Dates: start: 20120224, end: 20120310

REACTIONS (1)
  - RHABDOMYOLYSIS [None]
